FAERS Safety Report 4881837-1 (Version None)
Quarter: 2006Q1

REPORT INFORMATION
  Report Type: 
  Country: None (occurrence: None)
  Receive Date: 20060112
  Receipt Date: 20051230
  Transmission Date: 20060701
  Serious: Yes (Hospitalization)
  Sender: FDA-Public Use
  Company Number: 2006001499

PATIENT

DRUGS (3)
  1. EMCYT [Suspect]
     Indication: PROSTATE CANCER
     Dates: end: 20020930
  2. ETOPOSIDE [Suspect]
     Indication: PROSTATE CANCER
     Dates: end: 20020930
  3. TAXOL [Concomitant]
     Indication: PROSTATE CANCER
     Dates: end: 20020930

REACTIONS (2)
  - ATRIAL FIBRILLATION [None]
  - DYSPNOEA [None]
